FAERS Safety Report 14661488 (Version 1)
Quarter: 2018Q1

REPORT INFORMATION
  Report Type: Report from Study
  Country: US (occurrence: US)
  Receive Date: 20180320
  Receipt Date: 20180320
  Transmission Date: 20180509
  Serious: Yes (Hospitalization)
  Sender: FDA-Public Use
  Company Number: US-ACTELION-A-US2016-140782

PATIENT
  Age: 51 Year
  Sex: Male
  Weight: 83.45 kg

DRUGS (2)
  1. WARFARIN [Concomitant]
     Active Substance: WARFARIN
  2. VELETRI [Suspect]
     Active Substance: EPOPROSTENOL
     Indication: PULMONARY HYPERTENSION
     Dosage: 85 NG/KG, PER MIN
     Route: 042
     Dates: start: 20100823

REACTIONS (15)
  - Rash [Unknown]
  - Catheter site pain [Unknown]
  - Chills [Unknown]
  - Diarrhoea [Unknown]
  - Device related infection [Unknown]
  - Headache [Unknown]
  - Pain in jaw [Unknown]
  - Generalised erythema [Unknown]
  - Dyspnoea [Unknown]
  - Chest pain [Unknown]
  - Pyrexia [Unknown]
  - Heart rate increased [Unknown]
  - Catheter site pruritus [Unknown]
  - Pneumonia [Unknown]
  - Muscle strain [Recovered/Resolved]

NARRATIVE: CASE EVENT DATE: 2018
